FAERS Safety Report 22040698 (Version 2)
Quarter: 2023Q1

REPORT INFORMATION
  Report Type: Other
  Country: IT (occurrence: IT)
  Receive Date: 20230227
  Receipt Date: 20230306
  Transmission Date: 20230417
  Serious: Yes (Death, Hospitalization, Other)
  Sender: FDA-Public Use
  Company Number: IT-Albireo AB-2023ALB000064

PATIENT
  Age: 15 Year
  Sex: Male
  Weight: 53 kg

DRUGS (3)
  1. ODEVIXIBAT [Suspect]
     Active Substance: ODEVIXIBAT
     Indication: Progressive familial intrahepatic cholestasis
     Route: 048
     Dates: start: 20211213, end: 20230125
  2. FITOMENADIONE [Concomitant]
     Indication: Cholestasis
     Route: 030
  3. ACIDO URSODESOSSICOLICO [Concomitant]
     Indication: Progressive familial intrahepatic cholestasis
     Route: 048
     Dates: start: 2007

REACTIONS (3)
  - Diabetic foot infection [Not Recovered/Not Resolved]
  - Sepsis [Not Recovered/Not Resolved]
  - Septic shock [Fatal]

NARRATIVE: CASE EVENT DATE: 20230125
